FAERS Safety Report 4368933-2 (Version None)
Quarter: 2004Q2

REPORT INFORMATION
  Report Type: 
  Country: None (occurrence: None)
  Receive Date: 20040601
  Receipt Date: 20040601
  Transmission Date: 20050107
  Serious: Yes (Hospitalization)
  Sender: FDA-Public Use
  Company Number: None

PATIENT
  Age: 82 Year
  Sex: Male
  Weight: 83 kg

DRUGS (10)
  1. GATIFLOXACIN [Suspect]
     Dosage: 200 MG QD BY MOUTH
     Route: 048
     Dates: start: 20040408, end: 20040411
  2. SIMVASTATIN [Concomitant]
  3. FUROSEMIDE [Concomitant]
  4. LISINOPRIL [Concomitant]
  5. INSULIN, HUMAN REG [Concomitant]
  6. OMEPRAZOLE [Concomitant]
  7. ALBUTEROL [Concomitant]
  8. IPRATROPIUM BROMIDE [Concomitant]
  9. DOCUSATE SODIUM [Concomitant]
  10. TRAMADOL HCL [Concomitant]

REACTIONS (1)
  - DIARRHOEA [None]
